FAERS Safety Report 7329790-5 (Version None)
Quarter: 2011Q1

REPORT INFORMATION
  Report Type: 
  Country: None (occurrence: None)
  Receive Date: 20110303
  Receipt Date: 20110222
  Transmission Date: 20110831
  Serious: Yes (Other)
  Sender: FDA-Public Use
  Company Number: US-CEPHALON-2011000836

PATIENT
  Sex: Female
  Weight: 49 kg

DRUGS (2)
  1. PROVIGIL [Suspect]
     Indication: NARCOLEPSY
     Route: 048
  2. AMOXICILLIN [Concomitant]

REACTIONS (5)
  - COUGH [None]
  - PULMONARY CONGESTION [None]
  - DENTAL IMPLANTATION [None]
  - INFLUENZA LIKE ILLNESS [None]
  - RASH [None]
